FAERS Safety Report 8402989-2 (Version None)
Quarter: 2012Q2

REPORT INFORMATION
  Report Type: 
  Country: None (occurrence: None)
  Receive Date: 20120601
  Receipt Date: 20120523
  Transmission Date: 20120825
  Serious: Yes (Other)
  Sender: FDA-Public Use
  Company Number: US-ABBOTT-12P-163-0938759-00

PATIENT
  Weight: 90.8 kg

DRUGS (9)
  1. HUMIRA [Suspect]
     Indication: CROHN'S DISEASE
  2. LISINOPRIL [Concomitant]
     Indication: HYPERTENSION
  3. POTASSIUM CHLORIDE [Concomitant]
     Indication: MINERAL SUPPLEMENTATION
  4. PENTASA [Concomitant]
     Indication: CROHN'S DISEASE
  5. HUMIRA [Suspect]
     Dates: end: 20080101
  6. AMLODIPINE [Concomitant]
     Indication: HYPERTENSION
  7. UNKNOWN ANTIHISTAMINE [Concomitant]
     Indication: HYPERSENSITIVITY
  8. UNKNOWN DECONGESTANTS [Concomitant]
     Indication: HYPERSENSITIVITY
  9. UNKNOWN VITAMINS [Concomitant]
     Indication: VITAMIN SUPPLEMENTATION

REACTIONS (4)
  - IMPAIRED HEALING [None]
  - TENDON RUPTURE [None]
  - CROHN'S DISEASE [None]
  - MUSCLE STRAIN [None]
